FAERS Safety Report 9077302 (Version 1)
Quarter: 2013Q1

REPORT INFORMATION
  Report Type: Spontaneous
  Country: US (occurrence: US)
  Receive Date: 20130130
  Receipt Date: 20130130
  Transmission Date: 20140127
  Serious: No
  Sender: FDA-Public Use
  Company Number: US-BAYER-2013-005456

PATIENT
  Sex: Male

DRUGS (7)
  1. BETASERON [Suspect]
     Dosage: 0.25 ML, QOD
     Route: 058
  2. VITAMIN C [Concomitant]
  3. ADVIL [Concomitant]
  4. FISH OIL [Concomitant]
  5. MULTIVITAMIN [Concomitant]
  6. TYLENOL [PARACETAMOL] [Concomitant]
  7. POTASSIUM GLUCONATE [Concomitant]

REACTIONS (1)
  - Influenza like illness [Unknown]
